FAERS Safety Report 4318287-2 (Version None)
Quarter: 2004Q1

REPORT INFORMATION
  Report Type: 
  Country: None (occurrence: None)
  Receive Date: 20040315
  Receipt Date: 20031119
  Transmission Date: 20041129
  Serious: No
  Sender: FDA-Public Use
  Company Number: 2003187055US

PATIENT
  Age: 20 Year
  Sex: Female
  Weight: 54.4 kg

DRUGS (2)
  1. BEXTRA [Suspect]
     Indication: BURSITIS
     Dosage: 20 MG, QD
     Dates: start: 20031101
  2. BIRTH CONTROL [Concomitant]

REACTIONS (2)
  - AFFECTIVE DISORDER [None]
  - HOT FLUSH [None]
